FAERS Safety Report 4647694-3 (Version None)
Quarter: 2005Q2

REPORT INFORMATION
  Report Type: 
  Country: None (occurrence: None)
  Receive Date: 20050427
  Receipt Date: 20050427
  Transmission Date: 20051028
  Serious: No
  Sender: FDA-Public Use
  Company Number: None

PATIENT
  Sex: Female

DRUGS (1)
  1. GENERIC MIDRIN [Suspect]
     Indication: HEADACHE
     Dosage: 1-2 TABS PRN HEADACHE

REACTIONS (1)
  - PHARMACEUTICAL PRODUCT COMPLAINT [None]
